FAERS Safety Report 13184649 (Version 3)
Quarter: 2018Q1

REPORT INFORMATION
  Report Type: Report from Study
  Country: JP (occurrence: JP)
  Receive Date: 20170203
  Receipt Date: 20180130
  Transmission Date: 20180508
  Serious: Yes (Hospitalization, Other)
  Sender: FDA-Public Use
  Company Number: JP-ROCHE-1886374

PATIENT
  Age: 79 Year
  Sex: Male

DRUGS (2)
  1. BEVACIZUMAB. [Suspect]
     Active Substance: BEVACIZUMAB
     Indication: NON-SMALL CELL LUNG CANCER
     Dosage: DOSAGE IS UNCERTAIN.?MOST RECENT DOSE ON 13/FEB/2017
     Route: 041
     Dates: start: 20161215
  2. ALIMTA [Suspect]
     Active Substance: PEMETREXED DISODIUM
     Indication: NON-SMALL CELL LUNG CANCER
     Dosage: DOSAGE IS UNCERTAIN.?MOST RECENT DOSE ON 13/FEB/2017
     Route: 041
     Dates: start: 20161215

REACTIONS (8)
  - Febrile neutropenia [Unknown]
  - Malaise [Unknown]
  - Hyperkalaemia [Unknown]
  - Neutrophil count decreased [Unknown]
  - Bone marrow failure [Recovered/Resolved]
  - Soft tissue infection [Recovering/Resolving]
  - Infection [Recovering/Resolving]
  - White blood cell count decreased [Unknown]

NARRATIVE: CASE EVENT DATE: 201701
